FAERS Safety Report 9375310 (Version 2)
Quarter: 2013Q3

REPORT INFORMATION
  Report Type: Spontaneous
  Country: TR (occurrence: TR)
  Receive Date: 20130628
  Receipt Date: 20130708
  Transmission Date: 20140515
  Serious: Yes (Hospitalization)
  Sender: FDA-Public Use
  Company Number: TR-ABBOTT-13P-161-1110881-00

PATIENT
  Age: 35 Year
  Sex: Male
  Weight: 85 kg

DRUGS (3)
  1. HUMIRA [Suspect]
     Indication: ANKYLOSING SPONDYLITIS
     Route: 058
     Dates: start: 20120831, end: 20130610
  2. ETOL [Suspect]
     Indication: PRODUCT USED FOR UNKNOWN INDICATION
     Route: 048
     Dates: start: 20130704
  3. KLAMOKS [Concomitant]
     Indication: PRODUCT USED FOR UNKNOWN INDICATION
     Route: 048
     Dates: start: 20130704

REACTIONS (4)
  - Shock [Recovered/Resolved]
  - Road traffic accident [Recovered/Resolved]
  - Clavicle fracture [Recovered/Resolved]
  - Contusion [Recovered/Resolved]
